FAERS Safety Report 8833776 (Version 1)
Quarter: 2012Q4

REPORT INFORMATION
  Report Type: Spontaneous
  Country: MX (occurrence: None)
  Receive Date: 20121005
  Receipt Date: 20121005
  Transmission Date: 20130627
  Serious: Yes (Other)
  Sender: FDA-Public Use
  Company Number: VAL_00897_2012

PATIENT
  Sex: Female

DRUGS (8)
  1. METOPROLOL [Suspect]
     Indication: PRE-ECLAMPSIA
     Route: 048
  2. HYDRALAZINE [Suspect]
     Indication: PRE-ECLAMPSIA
  3. METHYLDOPA [Suspect]
     Indication: PRE-ECLAMPSIA
  4. LACTATED RINGER^S [Concomitant]
  5. OMEPRAZOLE [Concomitant]
  6. DEXAMETHASONE [Concomitant]
  7. PHENYTOIN SODIUM [Concomitant]
  8. ANAESTHETICS [Concomitant]

REACTIONS (3)
  - Uterine haemorrhage [None]
  - Exposure during pregnancy [None]
  - Caesarean section [None]
